FAERS Safety Report 19893929 (Version 1)
Quarter: 2021Q3

REPORT INFORMATION
  Report Type: Spontaneous
  Country: DE (occurrence: DE)
  Receive Date: 20210929
  Receipt Date: 20210929
  Transmission Date: 20211014
  Serious: Yes (Life-Threatening, Hospitalization, Other)
  Sender: FDA-Public Use
  Company Number: DE-BAUSCH-BL-2021-032741

PATIENT
  Age: 55 Year
  Sex: Male

DRUGS (2)
  1. METRONIDAZOLE. [Suspect]
     Active Substance: METRONIDAZOLE
     Indication: PERIODONTITIS
     Route: 065
     Dates: start: 20201023
  2. AMOXICILLIN. [Suspect]
     Active Substance: AMOXICILLIN
     Indication: PERIODONTITIS
     Route: 065
     Dates: start: 20201023

REACTIONS (1)
  - Toxic epidermal necrolysis [Recovering/Resolving]

NARRATIVE: CASE EVENT DATE: 20201031
